FAERS Safety Report 7291628-2 (Version None)
Quarter: 2011Q1

REPORT INFORMATION
  Report Type: 
  Country: None (occurrence: None)
  Receive Date: 20110214
  Receipt Date: 20110209
  Transmission Date: 20110831
  Serious: Yes (Death, Other)
  Sender: FDA-Public Use
  Company Number: SE-JNJFOC-20101201244

PATIENT
  Sex: Male

DRUGS (2)
  1. CONCERTA [Suspect]
     Indication: ATTENTION DEFICIT/HYPERACTIVITY DISORDER
     Route: 048
  2. XANOR [Suspect]
     Indication: ILL-DEFINED DISORDER
     Route: 065

REACTIONS (15)
  - AGITATION [None]
  - ANURIA [None]
  - RHABDOMYOLYSIS [None]
  - HALLUCINATION [None]
  - HYPOXIC-ISCHAEMIC ENCEPHALOPATHY [None]
  - GASTROINTESTINAL NECROSIS [None]
  - CARDIAC ARREST [None]
  - WRONG TECHNIQUE IN DRUG USAGE PROCESS [None]
  - DRUG LEVEL INCREASED [None]
  - MULTI-ORGAN FAILURE [None]
  - RENAL FAILURE ACUTE [None]
  - INTENTIONAL OVERDOSE [None]
  - COAGULOPATHY [None]
  - HYPOTHERMIA [None]
  - LIVER INJURY [None]
